FAERS Safety Report 13557688 (Version 1)
Quarter: 2017Q2

REPORT INFORMATION
  Report Type: Spontaneous
  Country: US (occurrence: US)
  Receive Date: 20170517
  Receipt Date: 20170517
  Transmission Date: 20170830
  Serious: Yes (Hospitalization)
  Sender: FDA-Public Use
  Company Number: None

PATIENT
  Age: 37 Year
  Sex: Female
  Weight: 51 kg

DRUGS (1)
  1. ERIBULIN MESYLATE 1.4 MG/M2 EISAI [Suspect]
     Active Substance: ERIBULIN MESYLATE
     Indication: CERVIX CARCINOMA
     Dosage: ?          OTHER FREQUENCY:D1/D8 Q 21 DY CYCL;?
     Route: 042
     Dates: start: 20170424

REACTIONS (4)
  - Urinary tract infection [None]
  - Acute kidney injury [None]
  - Hydronephrosis [None]
  - Febrile neutropenia [None]

NARRATIVE: CASE EVENT DATE: 20170503
